FAERS Safety Report 5777286-4 (Version None)
Quarter: 2008Q2

REPORT INFORMATION
  Report Type: 
  Country: None (occurrence: None)
  Receive Date: 20080618
  Receipt Date: 20080613
  Transmission Date: 20081010
  Serious: Yes (Hospitalization)
  Sender: FDA-Public Use
  Company Number: JP-BRISTOL-MYERS SQUIBB COMPANY-14205249

PATIENT
  Age: 62 Year
  Sex: Female

DRUGS (14)
  1. TAXOL [Suspect]
     Indication: NON-SMALL CELL LUNG CANCER
     Route: 041
     Dates: start: 20080213, end: 20080516
  2. PARAPLATIN [Suspect]
     Indication: NON-SMALL CELL LUNG CANCER
     Route: 041
     Dates: start: 20080213, end: 20080516
  3. AVASTIN [Concomitant]
     Indication: NON-SMALL CELL LUNG CANCER
     Dosage: GENETIC RECOMBINATION
     Route: 041
     Dates: start: 20080213, end: 20080516
  4. VENA [Concomitant]
     Route: 048
     Dates: start: 20080516
  5. FAMOTIDINE [Concomitant]
     Route: 041
     Dates: start: 20080516, end: 20080516
  6. DECADRON [Concomitant]
     Dosage: TAKEN AGAIN ON 18MAY08-20MAY08 ORAL
     Route: 048
     Dates: start: 20080518, end: 20080520
  7. KYTRIL [Concomitant]
     Route: 041
     Dates: start: 20080516, end: 20080516
  8. ISODINE [Concomitant]
     Route: 049
     Dates: start: 20080217
  9. ALLEGRA [Concomitant]
     Route: 048
     Dates: start: 20080516, end: 20080523
  10. LOXOPROFEN [Concomitant]
     Route: 048
     Dates: start: 20080520, end: 20080521
  11. MYSLEE [Concomitant]
     Route: 048
     Dates: start: 20080522, end: 20080529
  12. MAGNESIUM OXIDE [Concomitant]
     Route: 048
     Dates: start: 20080519, end: 20080528
  13. VEEN-F [Concomitant]
     Route: 041
     Dates: start: 20080527, end: 20080527
  14. NEU-UP [Concomitant]
     Dosage: GENETIC RECOMBINATION
     Route: 058
     Dates: start: 20080530, end: 20080601

REACTIONS (3)
  - MALAISE [None]
  - MIGRAINE [None]
  - NEUROPATHY PERIPHERAL [None]
